FAERS Safety Report 6724888-4 (Version None)
Quarter: 2010Q2

REPORT INFORMATION
  Report Type: 
  Country: None (occurrence: None)
  Receive Date: 20100514
  Receipt Date: 20100512
  Transmission Date: 20101027
  Serious: Yes (Other)
  Sender: FDA-Public Use
  Company Number: US-ASTRAZENECA-2009UW19098

PATIENT
  Age: 30 Year
  Sex: Male
  Weight: 108.4 kg

DRUGS (23)
  1. SEROQUEL [Suspect]
     Indication: SCHIZOAFFECTIVE DISORDER
     Route: 048
     Dates: start: 19920101, end: 20080601
  2. SEROQUEL [Suspect]
     Indication: AFFECTIVE DISORDER
     Route: 048
     Dates: start: 19920101, end: 20080601
  3. SEROQUEL [Suspect]
     Dosage: 200 MG BID AND HS
     Route: 048
     Dates: start: 20020901
  4. SEROQUEL [Suspect]
     Dosage: 200 MG BID AND HS
     Route: 048
     Dates: start: 20020901
  5. SEROQUEL [Suspect]
     Dosage: 300 MG BID AND HS
     Route: 048
     Dates: start: 20021101
  6. SEROQUEL [Suspect]
     Dosage: 300 MG BID AND HS
     Route: 048
     Dates: start: 20021101
  7. SEROQUEL [Suspect]
     Route: 048
     Dates: start: 20070801
  8. SEROQUEL [Suspect]
     Route: 048
     Dates: start: 20070801
  9. ABILIFY [Concomitant]
  10. CLOZARIL [Concomitant]
  11. HALDOL [Concomitant]
     Route: 048
     Dates: start: 20050701
  12. HALDOL [Concomitant]
     Dosage: 5 MG NOON
     Route: 048
     Dates: start: 20050701
  13. RISPERDAL [Concomitant]
  14. THORAZINE [Concomitant]
  15. ZYPREXA [Concomitant]
  16. SYMBYAX [Concomitant]
  17. DILANTIN [Concomitant]
     Route: 048
     Dates: start: 20050701
  18. DEPAKOTE ER [Concomitant]
     Route: 048
     Dates: start: 20050701
  19. DEPAKOTE ER [Concomitant]
     Dosage: 500 MG 3 TABS Q EVENING
     Route: 048
     Dates: start: 20070801
  20. ATIVAN [Concomitant]
     Indication: AGITATION
     Route: 048
  21. ATIVAN [Concomitant]
     Dosage: 0.5 MG TID AND QID
     Route: 048
     Dates: start: 20070801
  22. AMBIEN [Concomitant]
     Route: 048
     Dates: start: 20070801
  23. LITHIUM CARBONATE [Concomitant]
     Dates: start: 20041201

REACTIONS (8)
  - ACCIDENTAL OVERDOSE [None]
  - CONVULSION [None]
  - DIABETIC NEPHROPATHY [None]
  - DIABETIC NEUROPATHY [None]
  - OBESITY [None]
  - RENAL FAILURE [None]
  - RENAL FAILURE CHRONIC [None]
  - TYPE 2 DIABETES MELLITUS [None]
